FAERS Safety Report 4894798-6 (Version None)
Quarter: 2006Q1

REPORT INFORMATION
  Report Type: 
  Country: None (occurrence: None)
  Receive Date: 20060126
  Receipt Date: 20060126
  Transmission Date: 20060701
  Serious: Yes (Life-Threatening, Hospitalization)
  Sender: FDA-Public Use
  Company Number: None

PATIENT
  Age: 55 Year
  Sex: Male

DRUGS (2)
  1. AVELOX [Suspect]
     Indication: OTITIS MEDIA
     Dosage: 400MG  ONCE DAILY  PO
     Route: 048
     Dates: start: 20060117, end: 20060121
  2. AVELOX [Suspect]
     Indication: OTITIS MEDIA
     Dosage: 400MG  ONCE DAILY  PO
     Route: 048
     Dates: start: 20060121, end: 20060121

REACTIONS (10)
  - BODY TEMPERATURE INCREASED [None]
  - CHILLS [None]
  - IRRITABILITY [None]
  - MALAISE [None]
  - MUSCLE TWITCHING [None]
  - MYALGIA [None]
  - NAUSEA [None]
  - PO2 DECREASED [None]
  - URINE OUTPUT DECREASED [None]
  - VOMITING [None]
